FAERS Safety Report 12860361 (Version 1)
Quarter: 2016Q4

REPORT INFORMATION
  Report Type: Spontaneous
  Country: IE (occurrence: IE)
  Receive Date: 20161019
  Receipt Date: 20161019
  Transmission Date: 20170207
  Serious: Yes (Hospitalization)
  Sender: FDA-Public Use
  Company Number: IE-PFIZER INC-2016481613

PATIENT
  Age: 40 Year
  Sex: Male

DRUGS (5)
  1. TOBRAMYCIN. [Suspect]
     Active Substance: TOBRAMYCIN
     Indication: CYSTIC FIBROSIS
     Dosage: 8 MG/KG, 1X/DAY
     Route: 042
     Dates: start: 20160912
  2. MERONEM [Suspect]
     Active Substance: MEROPENEM
     Indication: LOCALISED INFECTION
  3. SODIUM CHLORIDE. [Suspect]
     Active Substance: SODIUM CHLORIDE
     Indication: MEDICATION DILUTION
     Dosage: 100 ML, 3X/DAY
     Route: 042
     Dates: start: 20160912, end: 20160914
  4. MERONEM [Suspect]
     Active Substance: MEROPENEM
     Indication: CYSTIC FIBROSIS
     Dosage: 2000 MG, 3X/DAY
     Route: 042
     Dates: start: 20160912, end: 20160914
  5. WATER FOR INJECTIONS [Suspect]
     Active Substance: WATER
     Indication: MEDICATION DILUTION
     Dosage: UNK, 3X/DAY
     Route: 042
     Dates: start: 20160912, end: 20160914

REACTIONS (3)
  - Liver function test increased [Recovering/Resolving]
  - Asthenia [Recovered/Resolved]
  - Paraesthesia oral [Recovered/Resolved]

NARRATIVE: CASE EVENT DATE: 20160912
